FAERS Safety Report 15795700 (Version 2)
Quarter: 2019Q1

REPORT INFORMATION
  Report Type: Spontaneous
  Country: FR (occurrence: FR)
  Receive Date: 20190107
  Receipt Date: 20190205
  Transmission Date: 20190417
  Serious: Yes (Hospitalization, Disabling)
  Sender: FDA-Public Use
  Company Number: FR-MYLANLABS-2018M1097926

PATIENT
  Age: 21 Year
  Sex: Male

DRUGS (6)
  1. ENDOXAN                            /00021101/ [Suspect]
     Active Substance: CYCLOPHOSPHAMIDE
     Indication: B-CELL LYMPHOMA
     Dosage: 750 MILLIGRAM/SQ. METER, CYCLE (750 MG/M2 PAR CURE, 9 CURES : 6750 MG/M2)
     Route: 042
     Dates: start: 20150310, end: 20150723
  2. METHOTREXATE MYLAN [Suspect]
     Active Substance: METHOTREXATE SODIUM
     Indication: B-CELL LYMPHOMA
     Dosage: UNK (4 INJECTIONS DE 15 MG : 60 MG)
     Route: 037
     Dates: start: 20150401, end: 20150513
  3. VINCRISTINE HOSPIRA [Suspect]
     Active Substance: VINCRISTINE
     Indication: B-CELL LYMPHOMA
     Dosage: 1.4 MILLIGRAM/SQ. METER, CYCLE (1.4 MG/M2 PAR CURE, 9 CURES : 12.6 MG/M2)
     Route: 042
     Dates: start: 20150310, end: 20150723
  4. MABTHERA [Suspect]
     Active Substance: RITUXIMAB
     Indication: B-CELL LYMPHOMA
     Dosage: 375 MILLIGRAM/SQ. METER, CYCLE (375 MG/M2 PAR CURE, 8 CURES : 300 MG/M2)
     Route: 042
     Dates: start: 20150314, end: 20150723
  5. ADRIBLASTINE [Suspect]
     Active Substance: DOXORUBICIN
     Indication: B-CELL LYMPHOMA
     Dosage: 500 MILLIGRAM/SQ. METER, CYCLE (50MG/M2 PAR CURE, 8 CURES : 400 MG/M2)
     Route: 042
     Dates: start: 20150314, end: 20150723
  6. PREDNISONE ARROW [Suspect]
     Active Substance: PREDNISONE
     Indication: B-CELL LYMPHOMA
     Dosage: 40 MILLIGRAM/SQ. METER, CYCLE (40 MG/M2 PAR CURE, 9 CURES : 360 MG/M2)
     Route: 042
     Dates: start: 20150310, end: 20150723

REACTIONS (1)
  - Left ventricular dysfunction [Not Recovered/Not Resolved]

NARRATIVE: CASE EVENT DATE: 20170112
